FAERS Safety Report 11725550 (Version 1)
Quarter: 2015Q4

REPORT INFORMATION
  Report Type: Spontaneous
  Country: US (occurrence: US)
  Receive Date: 20151110
  Receipt Date: 20151110
  Transmission Date: 20160304
  Serious: No
  Sender: FDA-Public Use
  Company Number: US-ELI_LILLY_AND_COMPANY-US201110001288

PATIENT
  Age: 65 Year
  Sex: Female

DRUGS (1)
  1. FORTEO [Suspect]
     Active Substance: TERIPARATIDE
     Indication: OSTEOPOROSIS
     Dosage: 20 UG, QD
     Dates: start: 200912

REACTIONS (8)
  - Contusion [Unknown]
  - Multiple fractures [Unknown]
  - Emotional disorder [Not Recovered/Not Resolved]
  - Bone density decreased [Unknown]
  - Ligament sprain [Unknown]
  - Fall [Unknown]
  - Crying [Unknown]
  - Joint injury [Unknown]

NARRATIVE: CASE EVENT DATE: 20111003
